FAERS Safety Report 5369590-9 (Version None)
Quarter: 2007Q2

REPORT INFORMATION
  Report Type: 
  Country: None (occurrence: None)
  Receive Date: 20070625
  Receipt Date: 20070614
  Transmission Date: 20071010
  Serious: Yes (Other)
  Sender: FDA-Public Use
  Company Number: GB-ASTRAZENECA-2007GB01261

PATIENT
  Age: 48 Year
  Sex: Male
  Weight: 78 kg

DRUGS (4)
  1. PROPOFOL [Suspect]
     Indication: INDUCTION OF ANAESTHESIA
     Route: 042
     Dates: start: 20070530
  2. FENTANYL [Interacting]
     Route: 040
     Dates: start: 20070530
  3. VARENICLINE [Interacting]
     Route: 048
     Dates: start: 20070514
  4. CANNABIS [Concomitant]

REACTIONS (3)
  - DRUG INEFFECTIVE [None]
  - DRUG INTERACTION [None]
  - INCORRECT DOSE ADMINISTERED [None]
